FAERS Safety Report 19032061 (Version 1)
Quarter: 2021Q1

REPORT INFORMATION
  Report Type: Report from Study
  Country: US (occurrence: US)
  Receive Date: 20210319
  Receipt Date: 20210319
  Transmission Date: 20210420
  Serious: Yes (Other)
  Sender: FDA-Public Use
  Company Number: US-JNJFOC-20210323886

PATIENT
  Age: 27 Year
  Sex: Female
  Weight: 71.28 kg

DRUGS (1)
  1. INFLIXIMAB, RECOMBINANT [Suspect]
     Active Substance: INFLIXIMAB
     Indication: INFLAMMATORY BOWEL DISEASE
     Dosage: LAST DOSE NOVEMBER 2016); REINITIATED ON AND UNKNOWN DATE AND DISCONTINUED ON AN UNKNOWN DATE (LAST
     Route: 042
     Dates: start: 20030603

REACTIONS (1)
  - Lymphoma [Not Recovered/Not Resolved]

NARRATIVE: CASE EVENT DATE: 20210222
